FAERS Safety Report 9844574 (Version 1)
Quarter: 2014Q1

REPORT INFORMATION
  Report Type: Spontaneous
  Country: US (occurrence: None)
  Receive Date: 20140123
  Receipt Date: 20140123
  Transmission Date: 20141002
  Serious: Yes (Disabling)
  Sender: FDA-Public Use
  Company Number: None

PATIENT
  Age: 26 Year
  Sex: Female
  Weight: 106.6 kg

DRUGS (1)
  1. MIRENA IUD [Suspect]

REACTIONS (5)
  - Muscle spasms [None]
  - Vaginal haemorrhage [None]
  - Alopecia [None]
  - Ovarian cyst [None]
  - Migraine [None]
